FAERS Safety Report 21778025 (Version 1)
Quarter: 2022Q4

REPORT INFORMATION
  Report Type: Spontaneous
  Country: NL (occurrence: NL)
  Receive Date: 20221226
  Receipt Date: 20221226
  Transmission Date: 20230112
  Serious: Yes (Life-Threatening, Hospitalization)
  Sender: FDA-Public Use
  Company Number: None

PATIENT

DRUGS (2)
  1. VENTOLIN [Suspect]
     Active Substance: ALBUTEROL SULFATE
     Indication: Asthma
     Dosage: UNK ADVICE FROM THE HOSPITAL WAS 4 TO 6 TIMES PER
     Route: 065
     Dates: start: 20180101, end: 20220801
  2. SYMBICORT [Concomitant]
     Active Substance: BUDESONIDE\FORMOTEROL FUMARATE DIHYDRATE
     Indication: Product used for unknown indication
     Dosage: INHALATION POWDER, 400/12 ?G/DOSE (MICROGRAMS PER DOSE)
     Route: 065

REACTIONS (3)
  - Oxygen saturation decreased [Unknown]
  - Lung disorder [Unknown]
  - Product substitution issue [Unknown]
